FAERS Safety Report 7693206-X (Version None)
Quarter: 2011Q3

REPORT INFORMATION
  Report Type: 
  Country: None (occurrence: None)
  Receive Date: 20110815
  Receipt Date: 20110809
  Transmission Date: 20111222
  Serious: Yes (Other)
  Sender: FDA-Public Use
  Company Number: GB-ACCORD-010280

PATIENT
  Age: 53 Year
  Sex: Female
  Weight: 78 kg

DRUGS (5)
  1. ACETAMINOPHEN [Concomitant]
  2. TOPIRAMATE [Suspect]
     Indication: PRODUCT USED FOR UNKNOWN INDICATION
     Dosage: 25.00-MG-2.00 TIMES PER- 1.0 DAYS ORAL
     Route: 048
     Dates: start: 20100618
  3. PAROXETINE HCL [Concomitant]
  4. TOLTERODINE TARTRATE [Concomitant]
  5. LANSOPRAZOLE [Concomitant]

REACTIONS (1)
  - TONGUE DISCOLOURATION [None]
